FAERS Safety Report 7269689 (Version 25)
Quarter: 2013Q2

REPORT INFORMATION
  Report Type: Report from Study
  Country: CA (occurrence: CA)
  Receive Date: 20100203
  Receipt Date: 20130621
  Transmission Date: 20140414
  Serious: Yes (Death, Life-Threatening, Hospitalization, Other)
  Sender: FDA-Public Use
  Company Number: PHHY2010CA03624

PATIENT
  Sex: Male

DRUGS (6)
  1. SANDOSTATIN LAR [Suspect]
     Indication: METASTATIC CARCINOID TUMOUR
     Dosage: 30 MG, BIW
     Route: 030
     Dates: start: 20090220
  2. SANDOSTATIN LAR [Suspect]
     Dosage: 30 MG, TIW
     Route: 030
  3. SANDOSTATIN LAR [Suspect]
     Dosage: 30 MG, EVERY 2 WEEKS
     Route: 030
  4. SANDOSTATIN LAR [Suspect]
     Dosage: UNK UKN, MONTHLY
     Route: 030
  5. SANDOSTATIN LAR [Suspect]
     Dosage: 40 MG, EVERY 2 WEEKS
     Route: 030
  6. SANDOSTATIN LAR [Suspect]
     Dosage: 40 MG,EVERY 2 WEEKS
     Route: 030
     Dates: end: 20130524

REACTIONS (25)
  - Death [Fatal]
  - Sepsis [Recovering/Resolving]
  - Atrial fibrillation [Recovering/Resolving]
  - Renal failure [Recovering/Resolving]
  - Renal disorder [Unknown]
  - Renal impairment [Unknown]
  - Blood creatinine increased [Unknown]
  - Urinary tract infection [Not Recovered/Not Resolved]
  - Cystitis [Unknown]
  - Faecaloma [Unknown]
  - Diarrhoea [Not Recovered/Not Resolved]
  - Abdominal pain upper [Unknown]
  - Insomnia [Unknown]
  - Periorbital oedema [Unknown]
  - Pain [Recovering/Resolving]
  - Malaise [Unknown]
  - Swelling face [Unknown]
  - Blood pressure systolic increased [Unknown]
  - Blood creatinine decreased [Unknown]
  - Myalgia [Unknown]
  - Influenza like illness [Unknown]
  - Abdominal pain [Unknown]
  - Fatigue [Unknown]
  - Vomiting [Unknown]
  - Constipation [Unknown]
